FAERS Safety Report 6569260-5 (Version None)
Quarter: 2010Q1

REPORT INFORMATION
  Report Type: 
  Country: None (occurrence: None)
  Receive Date: 20100203
  Receipt Date: 20100129
  Transmission Date: 20100710
  Serious: Yes (Life-Threatening)
  Sender: FDA-Public Use
  Company Number: US-GILEAD-2010-0026843

PATIENT
  Sex: Male

DRUGS (21)
  1. TRUVADA [Suspect]
     Indication: HIV INFECTION
     Route: 048
     Dates: start: 20091230, end: 20100114
  2. RALTEGRAVIR [Suspect]
     Indication: HIV INFECTION
     Route: 048
     Dates: start: 20091230, end: 20100114
  3. MUCINEX [Concomitant]
     Indication: HYPERSENSITIVITY
     Dates: start: 20091223, end: 20091223
  4. M.V.I. [Concomitant]
     Indication: SUPPLEMENTATION THERAPY
     Dates: start: 20090325, end: 20091218
  5. PATANOL [Concomitant]
     Indication: HYPERSENSITIVITY
     Dates: start: 20090325, end: 20091218
  6. SUDAFED 12 HOUR [Concomitant]
     Indication: HYPERSENSITIVITY
     Dates: start: 20091223, end: 20091230
  7. SUDAFED 12 HOUR [Concomitant]
     Dates: start: 20090325, end: 20091218
  8. ASTELIN [Concomitant]
     Indication: SEASONAL ALLERGY
     Dates: start: 20090325, end: 20091218
  9. FEXOFENADINE [Concomitant]
     Indication: SEASONAL ALLERGY
     Dates: start: 20090325, end: 20091218
  10. CRESTOR [Concomitant]
     Indication: HYPERLIPIDAEMIA
     Dates: start: 20090325, end: 20091218
  11. IBUPROFEN [Concomitant]
     Indication: PAIN
     Dates: start: 20090325, end: 20091218
  12. LOVAZA [Concomitant]
     Indication: HYPERLIPIDAEMIA
     Dates: start: 20090325, end: 20091218
  13. MELATONIN [Concomitant]
     Indication: INSOMNIA
     Dates: start: 20090325, end: 20091218
  14. ZOLPIDEM TARTRATE [Concomitant]
     Indication: INSOMNIA
     Dates: start: 20090325, end: 20091218
  15. LORAZEPAM [Concomitant]
     Indication: ANXIETY
     Dates: start: 20090325, end: 20091218
  16. LACTOBACILLUS [Concomitant]
     Indication: SUPPLEMENTATION THERAPY
     Dates: start: 20090325, end: 20091218
  17. VITAMIN C [Concomitant]
     Indication: SUPPLEMENTATION THERAPY
     Dates: start: 20090325, end: 20091218
  18. NIACIN [Concomitant]
     Indication: SUPPLEMENTATION THERAPY
     Dates: start: 20090325, end: 20091218
  19. PROZAC [Concomitant]
     Indication: DEPRESSION
     Dates: start: 20040101, end: 20091218
  20. RANITIDINE [Concomitant]
     Indication: GASTROOESOPHAGEAL REFLUX DISEASE
     Dates: start: 20090918, end: 20091218
  21. ACYCLOVIR [Concomitant]
     Indication: ORAL DISORDER
     Dates: start: 20091115, end: 20091218

REACTIONS (4)
  - ALANINE AMINOTRANSFERASE INCREASED [None]
  - ANTI-HBC IGM ANTIBODY POSITIVE [None]
  - ASPARTATE AMINOTRANSFERASE INCREASED [None]
  - LIVER FUNCTION TEST ABNORMAL [None]
